FAERS Safety Report 14598140 (Version 1)
Quarter: 2018Q1

REPORT INFORMATION
  Report Type: Spontaneous
  Country: US (occurrence: US)
  Receive Date: 20180305
  Receipt Date: 20180305
  Transmission Date: 20180509
  Serious: Yes (Death, Hospitalization, Other)
  Sender: FDA-Public Use
  Company Number: US-TAKEDA-2018TUS005065

PATIENT
  Age: 57 Year
  Sex: Male

DRUGS (2)
  1. 6-MP [Concomitant]
     Active Substance: MERCAPTOPURINE
     Indication: CROHN^S DISEASE
     Dosage: UNK
  2. ENTYVIO [Suspect]
     Active Substance: VEDOLIZUMAB
     Indication: CROHN^S DISEASE
     Dosage: 300 MG, UNK
     Route: 042
     Dates: start: 20150403

REACTIONS (14)
  - Pancytopenia [Unknown]
  - Pneumonia cytomegaloviral [Unknown]
  - Histiocytosis haematophagic [Unknown]
  - Acute respiratory distress syndrome [Not Recovered/Not Resolved]
  - Oral candidiasis [Unknown]
  - Pulmonary embolism [Unknown]
  - Pneumonitis [Unknown]
  - Epstein-Barr virus infection [Unknown]
  - Cytomegalovirus viraemia [Unknown]
  - Splenic infarction [Unknown]
  - Toxoplasmosis [Unknown]
  - Sepsis [Unknown]
  - Death [Fatal]
  - Histoplasmosis [Unknown]

NARRATIVE: CASE EVENT DATE: 20180222
